FAERS Safety Report 10919333 (Version 1)
Quarter: 2015Q1

REPORT INFORMATION
  Report Type: Report from Study
  Country: US (occurrence: US)
  Receive Date: 20150316
  Receipt Date: 20150316
  Transmission Date: 20150721
  Serious: Yes (Hospitalization)
  Sender: FDA-Public Use
  Company Number: US-ACTELION-A-NJ2015-114538

PATIENT
  Age: 63 Year
  Sex: Male

DRUGS (9)
  1. XARELTO [Suspect]
     Active Substance: RIVAROXABAN
     Indication: PRODUCT USED FOR UNKNOWN INDICATION
     Route: 065
  2. CARDIZEM [Concomitant]
     Active Substance: DILTIAZEM HYDROCHLORIDE
     Dosage: 1120 MG, QD
     Dates: start: 201408
  3. MULTIVITAMIN [Concomitant]
     Active Substance: VITAMINS
     Dosage: 1 TB, QD
     Dates: start: 201408
  4. DIGOXIN. [Concomitant]
     Active Substance: DIGOXIN
     Dosage: 0.25 MG, QD
     Dates: start: 201408
  5. FERROUS SULFATE [Concomitant]
     Active Substance: FERROUS SULFATE\FERROUS SULFATE, DRIED
     Dosage: 325 MG, QD
     Dates: start: 201408
  6. WARFARIN [Concomitant]
     Active Substance: WARFARIN
     Dosage: 5 MG, QD
     Dates: start: 201408
  7. BUMEX [Concomitant]
     Active Substance: BUMETANIDE
     Dosage: 45 MG, BID
     Dates: start: 201408
  8. PROTONIX [Concomitant]
     Active Substance: PANTOPRAZOLE SODIUM
     Dosage: 40 MG, QD
     Dates: start: 201408
  9. MACITENTAN [Suspect]
     Active Substance: MACITENTAN
     Indication: PULMONARY ARTERIAL HYPERTENSION
     Dosage: 10 MG, QD
     Route: 048
     Dates: start: 201405, end: 201408

REACTIONS (5)
  - Haemoptysis [Unknown]
  - Headache [Unknown]
  - Vision blurred [Unknown]
  - Tracheostomy [Unknown]
  - Laryngitis [Unknown]

NARRATIVE: CASE EVENT DATE: 201405
